FAERS Safety Report 8236810-2 (Version None)
Quarter: 2012Q1

REPORT INFORMATION
  Report Type: 
  Country: None (occurrence: None)
  Receive Date: 20120327
  Receipt Date: 20120319
  Transmission Date: 20120608
  Serious: No
  Sender: FDA-Public Use
  Company Number: US-BAYER-2012-027635

PATIENT
  Age: 16 Year
  Sex: Female
  Weight: 61.224 kg

DRUGS (1)
  1. ALEVE (CAPLET) [Suspect]
     Dosage: 10CT VIAL
     Route: 048
     Dates: start: 20120319

REACTIONS (1)
  - NO ADVERSE EVENT [None]
